FAERS Safety Report 4984347-6 (Version None)
Quarter: 2006Q2

REPORT INFORMATION
  Report Type: 
  Country: None (occurrence: None)
  Receive Date: 20060420
  Receipt Date: 20060412
  Transmission Date: 20061013
  Serious: Yes (Hospitalization)
  Sender: FDA-Public Use
  Company Number: 2006050870

PATIENT
  Age: 74 Year
  Sex: Female

DRUGS (5)
  1. XANAX [Suspect]
     Indication: ILL-DEFINED DISORDER
     Dosage: 0.375 MG (0.125 MG, 3 IN 1 D), ORAL
     Route: 048
  2. OXYCODONE (OXYCODONE) [Suspect]
     Indication: BACK PAIN
     Dosage: 2 IN 1 D, ORAL
     Route: 048
     Dates: start: 20060127, end: 20060220
  3. ACETAMINOPHEN [Concomitant]
  4. NEXIUM [Concomitant]
  5. ERLOTINIB (ERLOTINIB) [Concomitant]

REACTIONS (5)
  - AMNESIA [None]
  - CONFUSIONAL STATE [None]
  - FALL [None]
  - HYPOKINESIA [None]
  - WRIST FRACTURE [None]
